FAERS Safety Report 6786396-4 (Version None)
Quarter: 2010Q2

REPORT INFORMATION
  Report Type: 
  Country: None (occurrence: None)
  Receive Date: 20100623
  Receipt Date: 20100615
  Transmission Date: 20101027
  Serious: Yes (Hospitalization, Disabling)
  Sender: FDA-Public Use
  Company Number: US-AMGEN-KDL412414

PATIENT
  Sex: Male
  Weight: 89 kg

DRUGS (8)
  1. PROCRIT [Suspect]
     Indication: RENAL FAILURE CHRONIC
     Route: 065
     Dates: start: 20100408, end: 20100426
  2. ASPIRIN [Concomitant]
  3. REVLIMID [Concomitant]
  4. VELCADE [Concomitant]
  5. COREG [Concomitant]
  6. LASIX [Concomitant]
  7. ALTACE [Concomitant]
  8. VERAPAMIL [Concomitant]

REACTIONS (1)
  - CARDIAC ARREST [None]
